FAERS Safety Report 4443170-1 (Version None)
Quarter: 2004Q3

REPORT INFORMATION
  Report Type: 
  Country: None (occurrence: None)
  Receive Date: 20040903
  Receipt Date: 20040702
  Transmission Date: 20050211
  Serious: Yes (Other)
  Sender: FDA-Public Use
  Company Number: 2004UW13746

PATIENT
  Age: 39 Year
  Sex: Female

DRUGS (5)
  1. CRESTOR [Suspect]
     Indication: BLOOD CHOLESTEROL INCREASED
  2. PLAXIL [Concomitant]
  3. ALLEGRA [Concomitant]
  4. ZYRTEC [Concomitant]
  5. FLONASE [Concomitant]

REACTIONS (1)
  - CONTUSION [None]
